FAERS Safety Report 9177643 (Version 2)
Quarter: 2013Q2

REPORT INFORMATION
  Report Type: Spontaneous
  Country: US (occurrence: None)
  Receive Date: 20120531
  Receipt Date: 20130130
  Transmission Date: 20140414
  Serious: Yes (Other)
  Sender: FDA-Public Use
  Company Number: US201201007454

PATIENT
  Age: 62 Year
  Sex: Female

DRUGS (17)
  1. BYETTA [Suspect]
     Route: 058
     Dates: start: 20071003
  2. ULTRACET (PARACETAMOL, TRAMADOL HYDROCHLORIDE) [Concomitant]
  3. MOBIC (MELOXICAM) [Concomitant]
  4. NOVOLOG (INSULIN ASPART) [Concomitant]
  5. LANTUS (INSULIN GLARGINE) [Concomitant]
  6. TRIGLIDE (FENOFIBRATE) [Concomitant]
  7. AMBIEN (ZOLPIDEM TARTRATE) [Concomitant]
  8. LASIX (FUROSEMIDE) [Concomitant]
  9. CYMBALTA (DULOXETINE HYDROCHLORIDE) [Concomitant]
  10. PHENERGAN (PROMETHAZINE HYDROCHLORIDE) [Concomitant]
  11. AMARYL (GLIMEPIRIDE) [Concomitant]
  12. OXYCODONE [Concomitant]
  13. TUSSIONEX (HYDROCODONE BITARTRATE, PHENYLTOLOXAMINE) [Concomitant]
  14. PLAVIX (CLOPIDOGREL  BISULFATE) [Concomitant]
  15. LISINOPRIL (LISINOPRIL) [Concomitant]
  16. ACETONEL (RISEDRONATE SODIUM) [Concomitant]
  17. ASPIRIN (ACETYLSALICYLIC ACID) [Concomitant]

REACTIONS (4)
  - Renal failure [None]
  - Renal failure acute [None]
  - Renal failure chronic [None]
  - Off label use [None]
